FAERS Safety Report 5978790-6 (Version None)
Quarter: 2008Q4

REPORT INFORMATION
  Report Type: 
  Country: None (occurrence: None)
  Receive Date: 20081204
  Receipt Date: 20081124
  Transmission Date: 20090506
  Serious: Yes (Hospitalization, Other)
  Sender: FDA-Public Use
  Company Number: PHHY2008FR29980

PATIENT
  Age: 71 Year
  Sex: Male

DRUGS (9)
  1. STALEVO 100 [Suspect]
     Indication: PARKINSON'S DISEASE
     Dosage: 200/100/25 MG
     Dates: start: 20080930, end: 20081022
  2. KARDEGIC [Concomitant]
     Dosage: 75 MG, UNK
     Dates: start: 20081017
  3. CALCIPARINE [Concomitant]
     Dosage: 0.2 UNK, BID
     Dates: start: 20081022
  4. ALLOPURINOL [Concomitant]
     Dosage: 100 MG DAILY
     Dates: start: 20081019
  5. ACTRAPID HUMAN [Concomitant]
     Dosage: 1 DF, UNK
     Dates: start: 20081015
  6. COLCHIMAX                               /FRA/ [Concomitant]
     Dosage: 1 DF, UNK
     Dates: start: 20081015
  7. ENOXAPARIN SODIUM [Concomitant]
     Dosage: 0.4 DAILY
     Dates: start: 20081015, end: 20081022
  8. AMARYL [Concomitant]
  9. GLUCOPHAGE [Concomitant]

REACTIONS (5)
  - CONCOMITANT DISEASE AGGRAVATED [None]
  - GOUT [None]
  - PARKINSON'S DISEASE [None]
  - RENAL FAILURE [None]
  - RHABDOMYOLYSIS [None]
